FAERS Safety Report 7882622-9 (Version None)
Quarter: 2011Q4

REPORT INFORMATION
  Report Type: 
  Country: None (occurrence: None)
  Receive Date: 20111101
  Receipt Date: 20110617
  Transmission Date: 20120403
  Serious: No
  Sender: FDA-Public Use
  Company Number: US-AMGEN-USASP2011023014

PATIENT
  Age: 57 Year
  Sex: Male

DRUGS (2)
  1. HUMIRA [Concomitant]
     Dosage: UNK
     Dates: start: 20050101
  2. ENBREL [Suspect]
     Indication: PSORIASIS
     Dosage: 50 MG, 2 TIMES/WK
     Dates: start: 20030808

REACTIONS (4)
  - MALAISE [None]
  - DRUG INEFFECTIVE [None]
  - NAUSEA [None]
  - PSORIASIS [None]
